FAERS Safety Report 22067150 (Version 2)
Quarter: 2023Q1

REPORT INFORMATION
  Report Type: Spontaneous
  Country: NO (occurrence: NO)
  Receive Date: 20230307
  Receipt Date: 20230309
  Transmission Date: 20230417
  Serious: Yes (Death, Hospitalization, Other)
  Sender: FDA-Public Use
  Company Number: None

PATIENT
  Age: 80 Year
  Sex: Male

DRUGS (7)
  1. INFLIXIMAB [Suspect]
     Active Substance: INFLIXIMAB
     Indication: Colitis
     Dosage: ADMINISTERED AS TWO DOSES OF 10 MG/KG IN /SEP/2022,
     Route: 065
     Dates: start: 20220901, end: 20220930
  2. INFLIXIMAB [Suspect]
     Active Substance: INFLIXIMAB
     Indication: Immunosuppression
  3. OPDIVO [Suspect]
     Active Substance: NIVOLUMAB
     Indication: Malignant melanoma
     Dosage: UNKNOWN,
     Route: 065
     Dates: start: 20220225, end: 20220325
  4. OPDIVO [Suspect]
     Active Substance: NIVOLUMAB
     Indication: Immunosuppression
  5. PREDNISOLONE [Suspect]
     Active Substance: PREDNISOLONE
     Indication: Colitis
     Dosage: HIGH DOSE
     Route: 065
     Dates: start: 202209, end: 20221027
  6. PREDNISOLONE [Suspect]
     Active Substance: PREDNISOLONE
     Indication: Immunosuppression
  7. CEFOTAXIME [Concomitant]
     Active Substance: CEFOTAXIME SODIUM
     Indication: Bacterial infection
     Dosage: UNKNOWN
     Route: 065
     Dates: start: 20221030

REACTIONS (16)
  - Colitis [Fatal]
  - Thrombocytopenia [Fatal]
  - Chronic kidney disease [Fatal]
  - Pneumonitis [Fatal]
  - Dermatitis [Fatal]
  - Hepatitis [Fatal]
  - Metastatic malignant melanoma [Fatal]
  - Fatigue [Unknown]
  - Metastases to lymph nodes [Unknown]
  - Immunosuppression [Unknown]
  - Neutropenia [Unknown]
  - COVID-19 [Unknown]
  - Bronchopulmonary aspergillosis [Fatal]
  - Pancreatitis necrotising [Fatal]
  - Fat necrosis [Fatal]
  - Product use in unapproved indication [Unknown]

NARRATIVE: CASE EVENT DATE: 20220101
